FAERS Safety Report 11885441 (Version 5)
Quarter: 2016Q1

REPORT INFORMATION
  Report Type: Spontaneous
  Country: US (occurrence: US)
  Receive Date: 20160104
  Receipt Date: 20160216
  Transmission Date: 20160526
  Serious: Yes (Hospitalization, Other)
  Sender: FDA-Public Use
  Company Number: US-BAYER-2015-496446

PATIENT
  Age: 72 Year
  Sex: Female

DRUGS (3)
  1. AMBRISENTAN [Suspect]
     Active Substance: AMBRISENTAN
     Indication: PULMONARY HYPERTENSION
     Dosage: 5 MG, QD
     Route: 065
     Dates: start: 20130318
  2. ATENOLOL. [Concomitant]
     Active Substance: ATENOLOL
  3. ADEMPAS [Suspect]
     Active Substance: RIOCIGUAT
     Indication: PULMONARY HYPERTENSION
     Dosage: UNK
     Route: 065
     Dates: end: 20151222

REACTIONS (5)
  - Palpitations [None]
  - Fatigue [Not Recovered/Not Resolved]
  - Atrial fibrillation [None]
  - Blood pressure increased [None]
  - Hypotension [None]

NARRATIVE: CASE EVENT DATE: 20151216
